FAERS Safety Report 8315995-3 (Version None)
Quarter: 2012Q2

REPORT INFORMATION
  Report Type: 
  Country: None (occurrence: None)
  Receive Date: 20120427
  Receipt Date: 20120423
  Transmission Date: 20120825
  Serious: Yes (Hospitalization)
  Sender: FDA-Public Use
  Company Number: US-GE HEALTHCARE MEDICAL DIAGNOSTICS-OSCN-PR-1204S-0062

PATIENT
  Age: 59 Year
  Sex: Male

DRUGS (13)
  1. NOVOLOG [Concomitant]
  2. OMNISCAN [Suspect]
     Indication: HEPATIC CIRRHOSIS
     Route: 042
     Dates: start: 20081008, end: 20081008
  3. LANTUS [Concomitant]
  4. POTASSIUM CHLORIDE [Concomitant]
  5. MAGNEVIST [Suspect]
     Dates: start: 20090201, end: 20090201
  6. AMILORIDE HYDROCHLORIDE [Concomitant]
  7. MAGNEVIST [Suspect]
     Indication: PRODUCT USED FOR UNKNOWN INDICATION
     Dates: start: 20081001, end: 20081001
  8. OMNISCAN [Suspect]
     Indication: DIAGNOSTIC PROCEDURE
     Route: 042
     Dates: start: 20090224, end: 20090224
  9. LASIX [Concomitant]
  10. AVAPRO [Concomitant]
  11. ATIVAN [Concomitant]
  12. PRILOSEC [Concomitant]
  13. LACTULOSE [Concomitant]

REACTIONS (7)
  - DYSPNOEA [None]
  - OEDEMA PERIPHERAL [None]
  - ERYTHEMA [None]
  - SKIN INDURATION [None]
  - DYSURIA [None]
  - SKIN INFECTION [None]
  - PLATELET COUNT DECREASED [None]
